FAERS Safety Report 11589433 (Version 2)
Quarter: 2015Q4

REPORT INFORMATION
  Report Type: Spontaneous
  Country: JP (occurrence: JP)
  Receive Date: 20151002
  Receipt Date: 20151006
  Transmission Date: 20160304
  Serious: Yes (Other)
  Sender: FDA-Public Use
  Company Number: JP-ASTRAZENECA-2015SE94024

PATIENT
  Sex: Female

DRUGS (10)
  1. IRESSA [Suspect]
     Active Substance: GEFITINIB
     Indication: LUNG ADENOCARCINOMA
     Route: 048
     Dates: start: 20150807, end: 20150907
  2. ALLELOCK [Concomitant]
     Active Substance: OLOPATADINE HYDROCHLORIDE
  3. ANTEBATE [Concomitant]
     Active Substance: BETAMETHASONE DIPROPIONATE
  4. MYSER [Concomitant]
     Active Substance: DIFLUPREDNATE
  5. HIRUDOID [Concomitant]
     Active Substance: GLYCOSAMINOGLYCANS
  6. PROPETO [Concomitant]
  7. ATARAX-P [Concomitant]
     Active Substance: HYDROXYZINE HYDROCHLORIDE
  8. IRESSA [Suspect]
     Active Substance: GEFITINIB
     Indication: LUNG ADENOCARCINOMA
     Route: 048
     Dates: start: 20150508, end: 20150806
  9. TALION [Concomitant]
     Active Substance: BEPOTASTINE
  10. PREDONINE [Concomitant]
     Active Substance: PREDNISOLONE\PREDNISOLONE ACETATE\PREDNISOLONE SODIUM SUCCINATE

REACTIONS (3)
  - Rash [Not Recovered/Not Resolved]
  - Ulcer [Not Recovered/Not Resolved]
  - Stomatitis [Not Recovered/Not Resolved]

NARRATIVE: CASE EVENT DATE: 2015
